FAERS Safety Report 6038969-4 (Version None)
Quarter: 2009Q1

REPORT INFORMATION
  Report Type: 
  Country: None (occurrence: None)
  Receive Date: 20090115
  Receipt Date: 20090112
  Transmission Date: 20090719
  Serious: Yes (Other)
  Sender: FDA-Public Use
  Company Number: BE-BAYER-200910435GPV

PATIENT
  Age: 73 Year
  Sex: Female

DRUGS (9)
  1. AVELOX [Suspect]
     Indication: PNEUMONIA
     Dosage: TOTAL DAILY DOSE: 400 MG  UNIT DOSE: 400 MG
     Route: 048
     Dates: start: 20081230, end: 20090105
  2. ACATAR [Concomitant]
     Indication: PNEUMONIA
     Route: 048
     Dates: start: 20081230
  3. NESIVINE [Concomitant]
     Indication: NASAL CONGESTION
     Route: 045
  4. DOGMATIL [Concomitant]
     Indication: ANXIETY
     Dosage: TOTAL DAILY DOSE: 25 MG  UNIT DOSE: 25 MG
     Route: 048
  5. HYPERLIPEN [Concomitant]
     Indication: HYPERCHOLESTEROLAEMIA
     Route: 048
  6. FEMOXIR [Concomitant]
     Indication: PROPHYLAXIS
     Route: 065
  7. OSTEOPLUS [Concomitant]
     Indication: OSTEOARTHRITIS
     Route: 065
  8. DIAMOX [Concomitant]
     Indication: VERTIGO
     Route: 065
  9. ANTIDIAB [Concomitant]
     Indication: GASTROINTESTINAL DISORDER
     Route: 065

REACTIONS (11)
  - BLOOD PRESSURE DECREASED [None]
  - DIARRHOEA [None]
  - DYSPNOEA [None]
  - HEART RATE INCREASED [None]
  - HEPATIC ENZYME INCREASED [None]
  - HEPATIC STEATOSIS [None]
  - HYPERSENSITIVITY [None]
  - HYPERVENTILATION [None]
  - MALAISE [None]
  - NAUSEA [None]
  - RESPIRATORY DISORDER [None]
